FAERS Safety Report 7601360-0 (Version None)
Quarter: 2011Q3

REPORT INFORMATION
  Report Type: 
  Country: None (occurrence: None)
  Receive Date: 20110711
  Receipt Date: 20110702
  Transmission Date: 20111222
  Serious: Yes (Death)
  Sender: FDA-Public Use
  Company Number: IT-TEVA-289357ISR

PATIENT
  Sex: Female

DRUGS (8)
  1. VINCRISTINE [Suspect]
     Indication: NON-HODGKIN'S LYMPHOMA STAGE III
     Dosage: 1.05 MILLIGRAM;
     Route: 042
     Dates: start: 20110413, end: 20110413
  2. METHYLPREDNISOLONE [Suspect]
     Indication: NON-HODGKIN'S LYMPHOMA STAGE III
     Dosage: 80 MILLIGRAM;
     Route: 042
     Dates: start: 20110414, end: 20110417
  3. PREDNISONE [Suspect]
     Indication: NON-HODGKIN'S LYMPHOMA STAGE III
     Dosage: 37.5 MILLIGRAM;
     Route: 048
     Dates: start: 20110419, end: 20110503
  4. ALLOPURINOL [Concomitant]
     Indication: HYPERURICAEMIA
     Dosage: 600 MILLIGRAM;
     Route: 048
     Dates: start: 20110413, end: 20110503
  5. DEXAMETHASONE [Concomitant]
     Indication: PROPHYLAXIS OF NAUSEA AND VOMITING
     Dosage: 20 MILLIGRAM;
     Route: 042
     Dates: start: 20110413, end: 20110413
  6. CYCLOPHOSPHAMIDE [Suspect]
     Indication: NON-HODGKIN'S LYMPHOMA STAGE III
     Dosage: 844.4 MILLIGRAM;
     Route: 042
     Dates: start: 20110413, end: 20110413
  7. DOXORUBICIN HCL [Suspect]
     Indication: NON-HODGKIN'S LYMPHOMA STAGE III
     Dosage: 18.76 MILLIGRAM;
     Route: 042
     Dates: start: 20110413, end: 20110413
  8. ONDANSETRON [Concomitant]
     Indication: PROPHYLAXIS OF NAUSEA AND VOMITING
     Dosage: 8 MILLIGRAM;
     Route: 042
     Dates: start: 20110413, end: 20110413

REACTIONS (7)
  - SEPSIS [None]
  - PNEUMONITIS [None]
  - HYPERPYREXIA [None]
  - JAUNDICE [None]
  - ABDOMINAL PAIN [None]
  - ENDOCARDITIS [None]
  - CHOLANGITIS [None]
